FAERS Safety Report 5975803-2 (Version None)
Quarter: 2008Q4

REPORT INFORMATION
  Report Type: 
  Country: None (occurrence: None)
  Receive Date: 20081202
  Receipt Date: 20081127
  Transmission Date: 20090506
  Serious: Yes (Death, Other)
  Sender: FDA-Public Use
  Company Number: JP-BRISTOL-MYERS SQUIBB COMPANY-14424113

PATIENT
  Age: 72 Year
  Sex: Male

DRUGS (3)
  1. BRIPLATIN [Suspect]
     Indication: OESOPHAGEAL CARCINOMA
     Dosage: INITIATED ON 19MAY03,40MG/M2
     Route: 041
     Dates: start: 20030728, end: 20030728
  2. FLUOROURACIL [Suspect]
     Indication: OESOPHAGEAL CARCINOMA
     Dosage: INITIATED ON 19MAY03,400MG/M2 ON DAY 1-5
     Route: 042
     Dates: start: 20030728
  3. RADIOTHERAPY [Suspect]
     Indication: OESOPHAGEAL CARCINOMA
     Dosage: INTIATED RARIOTHERAPY 60 GYRATION FROM 19-MAY-2003.
     Dates: start: 20030519, end: 20030711

REACTIONS (4)
  - CARDIO-RESPIRATORY ARREST [None]
  - DIARRHOEA [None]
  - HYPONATRAEMIA [None]
  - RENAL DISORDER [None]
